FAERS Safety Report 6509404-4 (Version None)
Quarter: 2009Q4

REPORT INFORMATION
  Report Type: 
  Country: None (occurrence: None)
  Receive Date: 20091210
  Receipt Date: 20080417
  Transmission Date: 20100525
  Serious: Yes (Other)
  Sender: FDA-Public Use
  Company Number: CIP07002791

PATIENT
  Age: 63 Year
  Sex: Female
  Weight: 68 kg

DRUGS (11)
  1. ACTONEL [Suspect]
     Indication: OSTEOPOROSIS
     Dosage: 35 MG ONCE WEEKLY, ORAL
     Route: 048
     Dates: start: 20031223, end: 20050401
  2. DIDRONEL [Suspect]
     Indication: OSTEOPOROSIS
     Dosage: 1 DF DAILY FOR 14 DAYS EVERY 2 MONTHS, ORAL
     Route: 048
     Dates: end: 19931001
  3. FOSAMAX [Suspect]
     Indication: OSTEOPOROSIS
     Dosage: 10 MG ONCE DAILY,O RAL
     Route: 048
     Dates: start: 19961001, end: 20031101
  4. LASIX [Concomitant]
  5. ATENOLOL [Concomitant]
  6. LIBRAX /00033301/ (CLIDINIUM BROMIDE, CHLORDIAZEPOXIDE HYDROCHLORIDE) [Concomitant]
  7. LIPITOR [Concomitant]
  8. ACTOS /01460201/ (PIOGLITAZONE) [Concomitant]
  9. TIGAN [Concomitant]
  10. XANAX [Concomitant]
  11. ZETIA [Concomitant]

REACTIONS (12)
  - DENTAL CARIES [None]
  - FISTULA [None]
  - FISTULA DISCHARGE [None]
  - JAW DISORDER [None]
  - LEUKOPLAKIA ORAL [None]
  - LOOSE TOOTH [None]
  - ORAL DISORDER [None]
  - ORAL PAIN [None]
  - OSTEONECROSIS [None]
  - RESORPTION BONE INCREASED [None]
  - STOMATITIS [None]
  - TOOTHACHE [None]
